FAERS Safety Report 23136852 (Version 1)
Quarter: 2023Q4

REPORT INFORMATION
  Report Type: Spontaneous
  Country: GB (occurrence: GB)
  Receive Date: 20231102
  Receipt Date: 20231102
  Transmission Date: 20240110
  Serious: Yes (Other)
  Sender: FDA-Public Use
  Company Number: None

PATIENT
  Age: 77 Year
  Sex: Male
  Weight: 81 kg

DRUGS (7)
  1. IBUPROFEN [Suspect]
     Active Substance: IBUPROFEN
     Indication: Ill-defined disorder
     Dosage: UNK
     Route: 065
     Dates: start: 20230922
  2. Adcal [Concomitant]
     Indication: Ill-defined disorder
     Dosage: 1 DOSAGE FORM, QD (TAKE ONE DAILY)
     Route: 065
     Dates: start: 20220804
  3. CALCIPOTRIENE [Concomitant]
     Active Substance: CALCIPOTRIENE
     Indication: Product used for unknown indication
     Dosage: 2 DOSAGE FORM, QD (MIX WITH EFUDIX 1:1 USE TWICE DAILY FOR 10 DAYS)
     Route: 065
     Dates: start: 20230922, end: 20231002
  4. DOVONEX [Concomitant]
     Active Substance: CALCIPOTRIENE
     Indication: Product used for unknown indication
     Dosage: 2 DOSAGE FORM, QD (FLUOROURACIL MIX WITH DOVONEX 1:1 TWICE A DAY FOR 20 DAYS)
     Route: 065
     Dates: start: 20230922, end: 20231002
  5. FLUOROURACIL [Concomitant]
     Active Substance: FLUOROURACIL
     Indication: Product used for unknown indication
     Dosage: 2 DOSAGE FORM, QD (MIX WITH DOVONEX 1:1 TWICE A DAY FOR 20 DAYS)
     Route: 065
     Dates: start: 20230922, end: 20231002
  6. FLUOROURACIL [Concomitant]
     Active Substance: FLUOROURACIL
     Dosage: 2 DOSAGE FORM, QD (CALCIPOTRIOL MIX WITH EFUDIX 1:1 USE TWICE DAILY FOR 10 DAYS)
     Route: 065
     Dates: start: 20230922, end: 20231002
  7. HYDROXYCHLOROQUINE SULFATE [Concomitant]
     Active Substance: HYDROXYCHLOROQUINE SULFATE
     Indication: Product used for unknown indication
     Dosage: 1 DOSAGE FORM, BID (CONSULTANT INITIATION TAKE ONE TWICE A DAY)
     Route: 065
     Dates: start: 20220519

REACTIONS (1)
  - Lip swelling [Recovered/Resolved]
